FAERS Safety Report 4675296-1 (Version None)
Quarter: 2005Q2

REPORT INFORMATION
  Report Type: 
  Country: None (occurrence: None)
  Receive Date: 20050527
  Receipt Date: 20050518
  Transmission Date: 20051028
  Serious: Yes (Death, Other)
  Sender: FDA-Public Use
  Company Number: 200514806GDDC

PATIENT
  Sex: Female

DRUGS (3)
  1. DOCETAXEL [Suspect]
     Route: 042
  2. MELPHALAN [Suspect]
  3. CARBOPLATIN [Suspect]

REACTIONS (4)
  - ASPIRATION [None]
  - CARDIO-RESPIRATORY ARREST [None]
  - COLITIS [None]
  - COMA [None]
